FAERS Safety Report 4758012-4 (Version None)
Quarter: 2005Q3

REPORT INFORMATION
  Report Type: 
  Country: None (occurrence: None)
  Receive Date: 20050830
  Receipt Date: 20050815
  Transmission Date: 20060218
  Serious: Yes (Life-Threatening, Hospitalization)
  Sender: FDA-Public Use
  Company Number: 2005-01742

PATIENT
  Age: 56 Year
  Sex: Female
  Weight: 64.4 kg

DRUGS (18)
  1. VELCADE [Suspect]
     Indication: MULTIPLE MYELOMA
     Dosage: 2.20 MG, INTRAVENOUS
     Route: 042
     Dates: start: 20050628, end: 20050726
  2. SCIO-469 [Suspect]
     Indication: MULTIPLE MYELOMA
     Dosage: 60.00 MG, TID, ORAL
     Route: 048
     Dates: start: 20050518, end: 20050726
  3. GLYBURIDE [Suspect]
     Indication: DIABETES MELLITUS
     Dates: start: 20011201
  4. COUMADIN [Concomitant]
  5. DURAGESIC-100 [Concomitant]
  6. ALIPAMIDE [Concomitant]
  7. FOLIC ACID [Concomitant]
  8. LEVOCARNITINE (LEVOCARNITINE) [Concomitant]
  9. VITAMIN B COMPLEX (PYRIDOXINE HYDROCHLORIDE, RIBOFLAVIN, CALCIUM PANTO [Concomitant]
  10. NEXIUM [Concomitant]
  11. BIAXIN [Concomitant]
  12. ALBUTEROL [Concomitant]
  13. POTASSIUM CHLORIDE [Concomitant]
  14. MAGNESIUM (MAGNESIUM) [Concomitant]
  15. NEURONTIN [Concomitant]
  16. LASIX [Concomitant]
  17. ARANESP [Concomitant]
  18. BISPHOSPHONATES [Concomitant]

REACTIONS (3)
  - CONFUSIONAL STATE [None]
  - HYPOGLYCAEMIA [None]
  - PNEUMONIA [None]
